FAERS Safety Report 11537054 (Version 1)
Quarter: 2015Q3

REPORT INFORMATION
  Report Type: Spontaneous
  Country: VN (occurrence: VN)
  Receive Date: 20150922
  Receipt Date: 20150922
  Transmission Date: 20151125
  Serious: Yes (Death)
  Sender: FDA-Public Use
  Company Number: VN-009507513-1509VNM009067

PATIENT
  Age: 69 Year
  Sex: Female

DRUGS (1)
  1. COZAAR [Suspect]
     Active Substance: LOSARTAN POTASSIUM
     Dosage: 1 TABLET, TWICE A DAY
     Route: 048
     Dates: start: 20140508

REACTIONS (1)
  - Hypertension [Fatal]
